FAERS Safety Report 6533128-0 (Version None)
Quarter: 2010Q1

REPORT INFORMATION
  Report Type: 
  Country: None (occurrence: None)
  Receive Date: 20100111
  Receipt Date: 20091228
  Transmission Date: 20100710
  Serious: Yes (Congenital Anomaly)
  Sender: FDA-Public Use
  Company Number: FR-SANOFI-AVENTIS-2009SA011204

PATIENT
  Age: 1 Day
  Sex: Male

DRUGS (8)
  1. PLAVIX [Suspect]
     Route: 064
     Dates: end: 20090916
  2. LANTUS [Suspect]
     Route: 064
  3. TRIATEC [Suspect]
     Route: 064
     Dates: end: 20090916
  4. TAHOR [Suspect]
     Route: 064
     Dates: end: 20090916
  5. METFORMIN [Suspect]
     Route: 064
     Dates: end: 20090916
  6. HUMALOG [Suspect]
     Route: 064
  7. ALLOPURINOL [Suspect]
     Route: 064
  8. KARDEGIC [Concomitant]
     Route: 064

REACTIONS (4)
  - DRUG EXPOSURE DURING PREGNANCY [None]
  - FOETAL GROWTH RETARDATION [None]
  - HYPOGLYCAEMIA NEONATAL [None]
  - PREMATURE BABY [None]
